FAERS Safety Report 5756981-7 (Version None)
Quarter: 2008Q2

REPORT INFORMATION
  Report Type: 
  Country: None (occurrence: None)
  Receive Date: 20080603
  Receipt Date: 20080523
  Transmission Date: 20081010
  Serious: No
  Sender: FDA-Public Use
  Company Number: JP-ELI_LILLY_AND_COMPANY-JP200805002690

PATIENT
  Sex: Female
  Weight: 32.1 kg

DRUGS (16)
  1. HUMALOG MIX 50/50 [Suspect]
     Indication: TYPE 2 DIABETES MELLITUS
     Dosage: 1 IU, 3/D
     Route: 058
     Dates: start: 20080331, end: 20080410
  2. HUMALOG MIX 50/50 [Suspect]
     Dosage: 2 IU, EACH MORNING
     Route: 058
     Dates: start: 20080411, end: 20080514
  3. HUMALOG MIX 50/50 [Suspect]
     Dosage: 1 IU, DAILY (1/D)
     Route: 058
     Dates: start: 20080411, end: 20080514
  4. HUMALOG MIX 50/50 [Suspect]
     Dosage: 1 IU, EACH EVENING
     Route: 058
     Dates: start: 20080411, end: 20080514
  5. MICARDIS [Concomitant]
     Indication: HYPERTENSION
     Dosage: 40 MG, DAILY (1/D)
     Route: 048
     Dates: start: 20070625, end: 20080427
  6. MICARDIS [Concomitant]
     Dosage: 20 MG, DAILY (1/D)
     Route: 048
     Dates: start: 20080428, end: 20080511
  7. FUROSEMIDE [Concomitant]
     Indication: OEDEMA
     Dosage: 20 MG, DAILY (1/D)
     Route: 048
     Dates: start: 20070709, end: 20080510
  8. FUROSEMIDE [Concomitant]
     Dosage: 20 MG, DAILY (1/D)
     Route: 048
     Dates: start: 20080521
  9. SPIRONOLACTONE [Concomitant]
     Indication: OEDEMA
     Dosage: 25 MG, DAILY (1/D)
     Route: 048
     Dates: start: 20070629, end: 20080510
  10. AMLODIPINE [Concomitant]
     Indication: HYPERTENSION
     Dosage: 2.5 MG, DAILY (1/D)
     Route: 048
     Dates: start: 20080317
  11. CALBLOCK [Concomitant]
     Indication: HYPERTENSION
     Dosage: 8 MG, DAILY (1/D)
     Route: 048
     Dates: start: 20080317, end: 20080509
  12. NELBIS [Concomitant]
     Indication: TYPE 2 DIABETES MELLITUS
     Dosage: 500 MG, EACH MORNING
     Route: 048
     Dates: start: 20060814
  13. NELBIS [Concomitant]
     Dosage: 250 MG, EACH EVENING
     Route: 048
     Dates: start: 20060814
  14. CRAMITON [Concomitant]
     Indication: TYPE 2 DIABETES MELLITUS
     Dosage: 2.5 MG, DAILY (1/D)
     Route: 048
     Dates: start: 20070918, end: 20080331
  15. KARY UNI [Concomitant]
     Indication: CATARACT
  16. SANCOBA [Concomitant]
     Indication: CATARACT

REACTIONS (2)
  - NEPHROGENIC ANAEMIA [None]
  - RENAL FAILURE [None]
